FAERS Safety Report 7638441-1 (Version None)
Quarter: 2011Q3

REPORT INFORMATION
  Report Type: 
  Country: None (occurrence: None)
  Receive Date: 20110727
  Receipt Date: 20110713
  Transmission Date: 20111222
  Serious: Yes (Hospitalization)
  Sender: FDA-Public Use
  Company Number: BR-ELI_LILLY_AND_COMPANY-BR201107003715

PATIENT
  Sex: Female
  Weight: 67 kg

DRUGS (4)
  1. ENALAPRIL MALEATE [Concomitant]
     Dosage: UNK, UNKNOWN
     Route: 065
  2. FORTEO [Suspect]
     Indication: OSTEOPOROSIS
     Dosage: 20 UG, QD
     Route: 058
  3. SINVASTATINA [Concomitant]
     Dosage: UNK, UNKNOWN
     Route: 065
  4. DAFLON [Concomitant]
     Dosage: UNK, UNKNOWN
     Route: 065

REACTIONS (4)
  - URINARY TRACT INFECTION [None]
  - FALL [None]
  - DYSGEUSIA [None]
  - HUNGER [None]
